FAERS Safety Report 15854436 (Version 2)
Quarter: 2019Q1

REPORT INFORMATION
  Report Type: Report from Study
  Country: CA (occurrence: CA)
  Receive Date: 20190122
  Receipt Date: 20190130
  Transmission Date: 20190417
  Serious: Yes (Other)
  Sender: FDA-Public Use
  Company Number: CA-ROCHE-2249975

PATIENT
  Age: 63 Year
  Sex: Female

DRUGS (6)
  1. OCREVUS [Suspect]
     Active Substance: OCRELIZUMAB
     Indication: RELAPSING-REMITTING MULTIPLE SCLEROSIS
     Dosage: 300 MG AT DAY 0 AND 14, THEN 600 MG EVERY 6 MONTH
     Route: 042
     Dates: start: 20180723
  2. NAPROXEN. [Concomitant]
     Active Substance: NAPROXEN
     Dosage: ONGOING YES?(IF SHE DOES NOT TAKE IT SHE WILL BE IN PAIN)
     Route: 065
  3. SYNTHROID [Concomitant]
     Active Substance: LEVOTHYROXINE SODIUM
     Dosage: FOR THYROID FOR ALMOST 3 YEARS?ONGOING YES
     Route: 065
  4. SOLIFENACIN [Concomitant]
     Active Substance: SOLIFENACIN
     Dosage: FOR BLADDER CONTROL FOR AT LEAST 2 YEARS,
     Route: 065
  5. BIOTIN [Concomitant]
     Active Substance: BIOTIN
     Dosage: FOR SKIN AND HAIR (HAIR IS FALLING OUT AND NAILS ARE BREAKING AND THESE ARE PRE-EXISTING CONDITIONS)
     Route: 065
  6. SYSTANE (HYPROMELLOSE 2910 (4000 MPA.S)) [Concomitant]
     Active Substance: HYPROMELLOSE 2910 (4000 MPA.S)
     Dosage: FOR EYE HYDRATION
     Route: 065

REACTIONS (3)
  - Halo vision [Not Recovered/Not Resolved]
  - Nasopharyngitis [Not Recovered/Not Resolved]
  - Visual impairment [Not Recovered/Not Resolved]

NARRATIVE: CASE EVENT DATE: 201812
